FAERS Safety Report 7746177-1 (Version None)
Quarter: 2011Q3

REPORT INFORMATION
  Report Type: 
  Country: None (occurrence: None)
  Receive Date: 20110913
  Receipt Date: 20110905
  Transmission Date: 20111222
  Serious: Yes (Death, Hospitalization)
  Sender: FDA-Public Use
  Company Number: DE-ROCHE-770444

PATIENT
  Sex: Male

DRUGS (5)
  1. EFUDEX [Concomitant]
     Indication: METASTASES TO LUNG
     Route: 042
     Dates: start: 20110131, end: 20110214
  2. MORPHINE [Concomitant]
  3. MARCUMAR [Concomitant]
     Dates: start: 20101001
  4. IRINOTECAN HCL [Concomitant]
     Indication: METASTASES TO LUNG
     Route: 042
     Dates: start: 20110131, end: 20110214
  5. AVASTIN [Suspect]
     Route: 042
     Dates: start: 20110117, end: 20110214

REACTIONS (2)
  - SEPSIS [None]
  - INTESTINAL PERFORATION [None]
